FAERS Safety Report 15310408 (Version 1)
Quarter: 2018Q3

REPORT INFORMATION
  Report Type: Spontaneous
  Country: FR (occurrence: FR)
  Receive Date: 20180823
  Receipt Date: 20180823
  Transmission Date: 20181010
  Serious: Yes (Hospitalization)
  Sender: FDA-Public Use
  Company Number: FR-BAYER-2018-153171

PATIENT
  Sex: Male

DRUGS (3)
  1. TENOFOVIR [Concomitant]
     Active Substance: TENOFOVIR
     Dosage: UNK
  2. STIVARGA [Suspect]
     Active Substance: REGORAFENIB
     Indication: HEPATOCELLULAR CARCINOMA
     Dosage: 40 MG, TID
  3. NADOLOL. [Concomitant]
     Active Substance: NADOLOL
     Dosage: UNK

REACTIONS (5)
  - Hyperbilirubinaemia [None]
  - Histiocytosis haematophagic [None]
  - Thrombocytopenia [None]
  - Pyrexia [None]
  - General physical health deterioration [None]

NARRATIVE: CASE EVENT DATE: 2018
